FAERS Safety Report 14137164 (Version 2)
Quarter: 2018Q1

REPORT INFORMATION
  Report Type: Spontaneous
  Country: US (occurrence: US)
  Receive Date: 20171027
  Receipt Date: 20180110
  Transmission Date: 20180508
  Serious: No
  Sender: FDA-Public Use
  Company Number: US-VIIV HEALTHCARE LIMITED-US2017GSK164695

PATIENT
  Sex: Male
  Weight: 100.68 kg

DRUGS (1)
  1. EPIVIR HBV [Suspect]
     Active Substance: LAMIVUDINE
     Indication: HIV INFECTION
     Dosage: 100 MG, UNK
     Dates: start: 2011

REACTIONS (1)
  - Therapeutic response unexpected [Unknown]
